FAERS Safety Report 8723388 (Version 2)
Quarter: 2012Q4

REPORT INFORMATION
  Report Type: 
  Country: US (occurrence: US)
  Receive Date: 20120814
  Receipt Date: 20121019
  Transmission Date: 20130627
  Serious: Yes (Other)
  Sender: FDA-Public Use
  Company Number: US-BAYER-2012-079162

PATIENT
  Age: 33 Year
  Sex: Female
  Weight: 59.41 kg

DRUGS (3)
  1. MIRENA [Suspect]
     Indication: CONTRACEPTION
     Dosage: 20 mcg/24hr, CONT
     Route: 015
     Dates: start: 20060606, end: 20110513
  2. MIRENA [Suspect]
     Indication: ABDOMINAL PAIN LOWER
     Dosage: 20 mcg/24hr, CONT
     Route: 015
     Dates: start: 20110513, end: 20120824
  3. MIRENA [Suspect]
     Indication: MIGRAINE

REACTIONS (7)
  - Genital haemorrhage [Recovered/Resolved]
  - Headache [Recovered/Resolved]
  - Acne [Recovered/Resolved]
  - Mood altered [Recovered/Resolved]
  - Abdominal pain lower [Recovered/Resolved]
  - Procedural pain [None]
  - Device difficult to use [None]
